FAERS Safety Report 22706545 (Version 3)
Quarter: 2024Q4

REPORT INFORMATION
  Report Type: Spontaneous
  Country: US (occurrence: US)
  Receive Date: 20230714
  Receipt Date: 20241114
  Transmission Date: 20250115
  Serious: No
  Sender: PFIZER
  Company Number: US-PFIZER INC-PV202300121085

PATIENT
  Age: 75 Year
  Sex: Female

DRUGS (2)
  1. IBRANCE [Suspect]
     Active Substance: PALBOCICLIB
     Indication: Breast cancer female
     Dosage: 125 MG, CYCLIC (1 TABLET, ONCE DAILY FOR 21 DAYS ON AND 7 DAYS OFF, WITH OR WITHOUT FOOD)
     Route: 048
  2. IBRANCE [Suspect]
     Active Substance: PALBOCICLIB
     Dosage: 100 MG, CYCLIC (1 TABLET DAILY FOR 3 WEEKS ON FOLLOWED BY 1 WEEK OFF)
     Route: 048

REACTIONS (2)
  - Gait disturbance [Unknown]
  - Fatigue [Unknown]
